FAERS Safety Report 25500291 (Version 1)
Quarter: 2025Q3

REPORT INFORMATION
  Report Type: Spontaneous
  Country: RU (occurrence: RU)
  Receive Date: 20250701
  Receipt Date: 20250701
  Transmission Date: 20251020
  Serious: Yes (Life-Threatening, Other)
  Sender: SANDOZ
  Company Number: None

PATIENT
  Sex: Male
  Weight: 65 kg

DRUGS (2)
  1. CYTARABINE [Suspect]
     Active Substance: CYTARABINE
     Indication: Product used for unknown indication
     Route: 037
  2. METHOTREXATE [Suspect]
     Active Substance: METHOTREXATE
     Indication: Product used for unknown indication
     Route: 065

REACTIONS (5)
  - Generalised tonic-clonic seizure [Recovering/Resolving]
  - Neurotoxicity [Recovering/Resolving]
  - Tongue paralysis [Recovering/Resolving]
  - Headache [Recovering/Resolving]
  - Dysarthria [Recovering/Resolving]
